FAERS Safety Report 5132544-1 (Version None)
Quarter: 2006Q4

REPORT INFORMATION
  Report Type: 
  Country: None (occurrence: None)
  Receive Date: 20061023
  Receipt Date: 20061010
  Transmission Date: 20070319
  Serious: Yes (Other)
  Sender: FDA-Public Use
  Company Number: PHEH2006US12850

PATIENT
  Age: 40 Year
  Sex: Male
  Weight: 117 kg

DRUGS (8)
  1. LOTREL [Suspect]
     Indication: HYPERTENSION
     Dosage: 5/40 MG, QD
     Route: 048
     Dates: start: 20060731, end: 20060925
  2. DURAGESIC [Concomitant]
     Indication: PAIN
  3. BACLOFEN [Concomitant]
     Indication: PAIN
     Route: 048
  4. ACTIQ [Concomitant]
  5. MIACALCIN [Concomitant]
  6. DILAUDID [Concomitant]
  7. ZOCOR [Concomitant]
     Indication: LIPIDS INCREASED
  8. CIPRO [Concomitant]
     Indication: ABSCESS

REACTIONS (9)
  - ABDOMINAL PAIN [None]
  - ANXIETY [None]
  - DYSPHAGIA [None]
  - DYSPNOEA [None]
  - PAIN [None]
  - PHARYNGEAL OEDEMA [None]
  - RASH [None]
  - SWOLLEN TONGUE [None]
  - THROAT TIGHTNESS [None]
